FAERS Safety Report 6607159-6 (Version None)
Quarter: 2010Q1

REPORT INFORMATION
  Report Type: 
  Country: None (occurrence: None)
  Receive Date: 20100212
  Receipt Date: 20091204
  Transmission Date: 20100710
  Serious: No
  Sender: FDA-Public Use
  Company Number: 1000009681

PATIENT
  Age: 48 Year
  Sex: Female

DRUGS (12)
  1. SAVELLA [Suspect]
     Indication: FIBROMYALGIA
     Dosage: 12.5 MG (12.5 MG, 1 IN 1 D), ORAL : 25 MG (12.5 MG, 2 IN 1 D), ORAL : 50 MG (25 MG, 2 IN 1 D), ORAL
     Route: 048
     Dates: start: 20091007, end: 20091007
  2. SAVELLA [Suspect]
     Indication: FIBROMYALGIA
     Dosage: 12.5 MG (12.5 MG, 1 IN 1 D), ORAL : 25 MG (12.5 MG, 2 IN 1 D), ORAL : 50 MG (25 MG, 2 IN 1 D), ORAL
     Route: 048
     Dates: start: 20091008, end: 20091009
  3. SAVELLA [Suspect]
     Indication: FIBROMYALGIA
     Dosage: 12.5 MG (12.5 MG, 1 IN 1 D), ORAL : 25 MG (12.5 MG, 2 IN 1 D), ORAL : 50 MG (25 MG, 2 IN 1 D), ORAL
     Route: 048
     Dates: start: 20091010, end: 20091013
  4. SAVELLA [Suspect]
     Indication: FIBROMYALGIA
     Dosage: 100 MG (50 MG, 2 IN 1 D), ORAL : 50 MG (25 MG, 2 IN 1 D), ORAL : 100 MG (50 MG, 2 IN 1 D), ORAL
     Route: 048
     Dates: start: 20091014, end: 20091023
  5. SAVELLA [Suspect]
     Indication: FIBROMYALGIA
     Dosage: 100 MG (50 MG, 2 IN 1 D), ORAL : 50 MG (25 MG, 2 IN 1 D), ORAL : 100 MG (50 MG, 2 IN 1 D), ORAL
     Route: 048
     Dates: start: 20091024, end: 20091030
  6. SAVELLA [Suspect]
     Indication: FIBROMYALGIA
     Dosage: 100 MG (50 MG, 2 IN 1 D), ORAL : 50 MG (25 MG, 2 IN 1 D), ORAL : 100 MG (50 MG, 2 IN 1 D), ORAL
     Route: 048
     Dates: start: 20091031
  7. PERCODAN-DEMI [Concomitant]
  8. FEMRING [Concomitant]
  9. LIDOCAINE [Concomitant]
  10. VOLTAREN [Concomitant]
  11. AMBIEN [Concomitant]
  12. IMITREX [Concomitant]

REACTIONS (1)
  - RASH [None]
